FAERS Safety Report 14760764 (Version 1)
Quarter: 2018Q2

REPORT INFORMATION
  Report Type: Report from Study
  Country: US (occurrence: US)
  Receive Date: 20180414
  Receipt Date: 20180414
  Transmission Date: 20180711
  Serious: Yes (Death, Hospitalization)
  Sender: FDA-Public Use
  Company Number: US-JNJFOC-20180407420

PATIENT
  Age: 34 Year
  Sex: Female

DRUGS (3)
  1. ALCOHOL. [Suspect]
     Active Substance: ALCOHOL
     Indication: PRODUCT USED FOR UNKNOWN INDICATION
     Route: 048
  2. ACETAMINOPHEN. [Suspect]
     Active Substance: ACETAMINOPHEN
     Indication: PRODUCT USED FOR UNKNOWN INDICATION
     Route: 048
  3. ACETAMINOPHEN. [Suspect]
     Active Substance: ACETAMINOPHEN
     Route: 048

REACTIONS (10)
  - Hepatic failure [Fatal]
  - Leukocytosis [Fatal]
  - Blood glucose decreased [Fatal]
  - Metabolic acidosis [Fatal]
  - Coagulopathy [Fatal]
  - Hepatorenal syndrome [Fatal]
  - Respiratory distress [Fatal]
  - Brain oedema [Fatal]
  - Drug administration error [Fatal]
  - Acute hepatic failure [Fatal]
